FAERS Safety Report 5952066-5 (Version None)
Quarter: 2008Q4

REPORT INFORMATION
  Report Type: 
  Country: None (occurrence: None)
  Receive Date: 20081113
  Receipt Date: 20080225
  Transmission Date: 20090506
  Serious: No
  Sender: FDA-Public Use
  Company Number: A0709981A

PATIENT
  Sex: Female

DRUGS (8)
  1. COREG [Suspect]
     Indication: HYPERTENSION
     Dosage: 6.25MG TWICE PER DAY
     Route: 048
     Dates: start: 19930101
  2. UNSPECIFIED MEDICATION [Suspect]
  3. DIGOXIN [Concomitant]
  4. ZESTRIL [Concomitant]
  5. COUMADIN [Concomitant]
  6. ZOCOR [Concomitant]
  7. LASIX [Concomitant]
  8. CALCIUM [Concomitant]

REACTIONS (1)
  - FEELING ABNORMAL [None]
